FAERS Safety Report 19746126 (Version 3)
Quarter: 2021Q3

REPORT INFORMATION
  Report Type: Report from Study
  Country: CO (occurrence: CO)
  Receive Date: 20210825
  Receipt Date: 20210915
  Transmission Date: 20211014
  Serious: Yes (Death, Hospitalization)
  Sender: FDA-Public Use
  Company Number: CO-INCYTE CORPORATION-2021IN006225

PATIENT

DRUGS (2)
  1. JAKAVI [Suspect]
     Active Substance: RUXOLITINIB
     Indication: MYELOFIBROSIS
     Dosage: UNK
     Route: 048
     Dates: start: 20210412
  2. JAKAVI [Suspect]
     Active Substance: RUXOLITINIB
     Dosage: 15 MG, Q12H
     Route: 048

REACTIONS (14)
  - Respiratory arrest [Fatal]
  - Renal impairment [Unknown]
  - Chest pain [Unknown]
  - Anaemia [Unknown]
  - Depressed mood [Unknown]
  - Dyspnoea [Unknown]
  - Pulmonary pain [Unknown]
  - Asthenia [Unknown]
  - Hypotension [Not Recovered/Not Resolved]
  - Back pain [Unknown]
  - Depression [Unknown]
  - Illness [Unknown]
  - Gait disturbance [Unknown]
  - Abdominal pain upper [Unknown]

NARRATIVE: CASE EVENT DATE: 20210801
